FAERS Safety Report 10896148 (Version 2)
Quarter: 2015Q1

REPORT INFORMATION
  Report Type: Report from Study
  Country: UA (occurrence: UA)
  Receive Date: 20150309
  Receipt Date: 20150312
  Transmission Date: 20150721
  Serious: Yes (Death, Life-Threatening)
  Sender: FDA-Public Use
  Company Number: UA-AMGEN-UKRCT2015020912

PATIENT
  Age: 52 Year
  Sex: Male
  Weight: 75 kg

DRUGS (6)
  1. DARBEPOETIN ALFA [Suspect]
     Active Substance: DARBEPOETIN ALFA
     Indication: ANAEMIA OF MALIGNANT DISEASE
     Dosage: UNK
     Route: 065
     Dates: start: 20150114, end: 20150227
  2. OSETRON [Concomitant]
     Indication: PREMEDICATION
     Dosage: 8 MG, UNK
     Dates: start: 20150114, end: 20150227
  3. CISPLATIN. [Concomitant]
     Active Substance: CISPLATIN
     Dosage: 150 MG, UNK
     Dates: start: 20150114, end: 20150227
  4. OMEPRAZOLE. [Concomitant]
     Active Substance: OMEPRAZOLE
     Indication: PREMEDICATION
     Dosage: 40 MG, UNK
     Dates: start: 20150114, end: 20150227
  5. DEXAMETHASON                       /00016001/ [Concomitant]
     Active Substance: DEXAMETHASONE
     Indication: PREMEDICATION
     Dosage: 8 MG, UNK
     Dates: start: 20150114, end: 20150227
  6. PACLITAXEL. [Concomitant]
     Active Substance: PACLITAXEL
     Dosage: 330 MG, UNK
     Dates: start: 20150114, end: 20150227

REACTIONS (1)
  - Blood pressure increased [Fatal]

NARRATIVE: CASE EVENT DATE: 20150228
